FAERS Safety Report 23911205 (Version 1)
Quarter: 2024Q2

REPORT INFORMATION
  Report Type: Spontaneous
  Country: US (occurrence: US)
  Receive Date: 20240528
  Receipt Date: 20240528
  Transmission Date: 20240716
  Serious: Yes (Death, Life-Threatening, Hospitalization, Other)
  Sender: FDA-Public Use
  Company Number: None

PATIENT
  Age: 55 Year
  Sex: Female

DRUGS (1)
  1. EXEMESTANE [Suspect]
     Active Substance: EXEMESTANE
     Indication: Breast cancer female

REACTIONS (5)
  - Peliosis hepatis [Fatal]
  - Haemoperitoneum [Fatal]
  - Shock haemorrhagic [Fatal]
  - Vascular compression [Fatal]
  - Acute kidney injury [Fatal]
